FAERS Safety Report 20438156 (Version 1)
Quarter: 2022Q1

REPORT INFORMATION
  Report Type: Spontaneous
  Country: DE (occurrence: DE)
  Receive Date: 20220207
  Receipt Date: 20220207
  Transmission Date: 20220423
  Serious: Yes (Other)
  Sender: FDA-Public Use
  Company Number: DE-ALKEM LABORATORIES LIMITED-DE-ALKEM-2021-06985

PATIENT
  Age: 53 Year
  Sex: Female

DRUGS (12)
  1. PREGABALIN [Suspect]
     Active Substance: PREGABALIN
     Indication: Product used for unknown indication
     Dosage: 150 MILLIGRAM, OD
     Route: 048
     Dates: start: 20210729
  2. PREGABALIN [Suspect]
     Active Substance: PREGABALIN
     Dosage: 25 MILLIGRAM, OD
     Route: 048
     Dates: start: 20210628, end: 20210630
  3. DEXAMETHASONE [Suspect]
     Active Substance: DEXAMETHASONE
     Indication: Product used for unknown indication
     Dosage: 2 MILLIGRAM, OD
     Route: 048
     Dates: start: 20210601
  4. METAMIZOLE [Suspect]
     Active Substance: METAMIZOLE
     Indication: Product used for unknown indication
     Dosage: 5000 MILLIGRAM, OD
     Route: 048
     Dates: start: 20210714
  5. METAMIZOLE [Suspect]
     Active Substance: METAMIZOLE
     Dosage: 2000 MILLIGRAM, OD
     Route: 048
     Dates: start: 20210629, end: 20210713
  6. METAMIZOLE [Suspect]
     Active Substance: METAMIZOLE
     Dosage: 1500 MILLIGRAM, OD
     Route: 048
     Dates: start: 20210628
  7. METOCLOPRAMIDE [Suspect]
     Active Substance: METOCLOPRAMIDE
     Indication: Product used for unknown indication
     Dosage: 30 MILLIGRAM, OD
     Route: 048
     Dates: start: 20210806, end: 20210829
  8. RISPERIDONE [Suspect]
     Active Substance: RISPERIDONE
     Indication: Product used for unknown indication
     Dosage: 2 MILLIGRAM, OD
     Route: 048
     Dates: start: 20210601, end: 20210627
  9. RISPERIDONE [Suspect]
     Active Substance: RISPERIDONE
     Dosage: 3 MILLIGRAM, OD
     Route: 048
     Dates: start: 20210628
  10. TRAMADOL HYDROCHLORIDE [Suspect]
     Active Substance: TRAMADOL HYDROCHLORIDE
     Indication: Product used for unknown indication
     Dosage: 200 MILLIGRAM, OD
     Route: 048
     Dates: start: 20210813
  11. TRAMADOL HYDROCHLORIDE [Suspect]
     Active Substance: TRAMADOL HYDROCHLORIDE
     Dosage: 50 MILLIGRAM, OD
     Route: 048
     Dates: start: 20210805
  12. TRAMADOL HYDROCHLORIDE [Suspect]
     Active Substance: TRAMADOL HYDROCHLORIDE
     Dosage: 100 MILLIGRAM, OD
     Route: 048
     Dates: start: 20210806, end: 20210812

REACTIONS (1)
  - Hepatic enzyme increased [Not Recovered/Not Resolved]
